FAERS Safety Report 15728450 (Version 1)
Quarter: 2018Q4

REPORT INFORMATION
  Report Type: Spontaneous
  Country: ES (occurrence: ES)
  Receive Date: 20181217
  Receipt Date: 20181217
  Transmission Date: 20190205
  Serious: Yes (Other)
  Sender: FDA-Public Use
  Company Number: PHHY2018ES076918

PATIENT
  Age: 62 Year

DRUGS (5)
  1. TACROLIMUS. [Suspect]
     Active Substance: TACROLIMUS
     Indication: STEM CELL TRANSPLANT
     Dosage: 1.3 MG (0.02 MG/KG), QD
     Route: 042
  2. METHOTREXATE. [Suspect]
     Active Substance: METHOTREXATE
     Indication: STEM CELL TRANSPLANT
     Dosage: UNK
     Route: 065
  3. METHOTREXATE. [Suspect]
     Active Substance: METHOTREXATE
     Indication: PROPHYLAXIS AGAINST GRAFT VERSUS HOST DISEASE
  4. TACROLIMUS. [Suspect]
     Active Substance: TACROLIMUS
     Indication: PROPHYLAXIS AGAINST GRAFT VERSUS HOST DISEASE
     Dosage: 0.6 MG, QD (LEVEL/DOSE: 12.5 MG/MLXMG)
     Route: 042
  5. TACROLIMUS. [Suspect]
     Active Substance: TACROLIMUS
     Dosage: UNK(LEVEL/DOSE: 12.5 MG/MLXMG)
     Route: 042

REACTIONS (9)
  - Toxic skin eruption [Unknown]
  - Systemic mycosis [Unknown]
  - Drug interaction [Unknown]
  - Off label use [Unknown]
  - Hyperphosphataemia [Unknown]
  - Fungal infection [Unknown]
  - Product use in unapproved indication [Unknown]
  - Immunosuppressant drug level increased [Unknown]
  - Renal impairment [Unknown]
